APPROVED DRUG PRODUCT: OXYCODONE AND ACETAMINOPHEN
Active Ingredient: ACETAMINOPHEN; OXYCODONE HYDROCHLORIDE
Strength: 325MG;5MG
Dosage Form/Route: TABLET;ORAL
Application: A040171 | Product #001
Applicant: WATSON LABORATORIES INC
Approved: Oct 30, 1997 | RLD: No | RS: No | Type: DISCN